FAERS Safety Report 18041483 (Version 2)
Quarter: 2020Q3

REPORT INFORMATION
  Report Type: Spontaneous
  Country: CA (occurrence: CA)
  Receive Date: 20200719
  Receipt Date: 20200727
  Transmission Date: 20201103
  Serious: Yes (Other)
  Sender: FDA-Public Use
  Company Number: CA-CELLTRION INC.-2020CA024358

PATIENT

DRUGS (12)
  1. INFLIXIMAB PFIZER (UNKNOWN) [Suspect]
     Active Substance: INFLIXIMAB
     Dosage: 400.0 MG
     Route: 042
  2. INFLIXIMAB PFIZER (UNKNOWN) [Suspect]
     Active Substance: INFLIXIMAB
     Dosage: 400.0 MG
     Route: 042
  3. HUMIRA [Suspect]
     Active Substance: ADALIMUMAB
     Route: 058
  4. INFLIXIMAB PFIZER (UNKNOWN) [Suspect]
     Active Substance: INFLIXIMAB
     Indication: CROHN^S DISEASE
     Dosage: 400.0 MG
     Route: 042
  5. STELARA [Suspect]
     Active Substance: USTEKINUMAB
     Route: 065
  6. INFLIXIMAB PFIZER (UNKNOWN) [Suspect]
     Active Substance: INFLIXIMAB
     Dosage: 600.0 MG, 1 EVERY 4 WEEKS
     Route: 042
  7. FENTANYL. [Concomitant]
     Active Substance: FENTANYL
     Indication: SEDATIVE THERAPY
     Dosage: 100 UG
     Route: 042
  8. MIDAZOLAM HYDROCHLORIDE. [Concomitant]
     Active Substance: MIDAZOLAM HYDROCHLORIDE
     Indication: SEDATION
     Dosage: 10 MG
     Route: 065
  9. REMICADE [Suspect]
     Active Substance: INFLIXIMAB
     Dosage: UNK MG
     Route: 065
  10. SOLU?MEDROL [Concomitant]
     Active Substance: METHYLPREDNISOLONE SODIUM SUCCINATE
     Dosage: UNK UNK, UNK
     Route: 042
  11. INFLIXIMAB PFIZER (UNKNOWN) [Suspect]
     Active Substance: INFLIXIMAB
     Dosage: 400.0 MG. 1 EVERY 4 WEEKS
     Route: 042
  12. SOLU?MEDROL [Concomitant]
     Active Substance: METHYLPREDNISOLONE SODIUM SUCCINATE
     Dosage: 40 MG, 1 EVERY 1 DAYS (DAILY)
     Route: 042

REACTIONS (16)
  - Inflammatory bowel disease [Unknown]
  - Adjustment disorder with depressed mood [Unknown]
  - Back pain [Unknown]
  - Constipation [Unknown]
  - Stress [Unknown]
  - Drug ineffective [Unknown]
  - Mucous stools [Unknown]
  - Proctitis ulcerative [Unknown]
  - Crohn^s disease [Unknown]
  - Gastrointestinal mucosa hyperaemia [Unknown]
  - Physical assault [Unknown]
  - Inflammation [Unknown]
  - Haematochezia [Unknown]
  - Gastrointestinal vascular malformation [Unknown]
  - Drug level abnormal [Unknown]
  - Gastrointestinal oedema [Unknown]
